FAERS Safety Report 25784443 (Version 4)
Quarter: 2025Q4

REPORT INFORMATION
  Report Type: Report from Study
  Country: US (occurrence: US)
  Receive Date: 20250910
  Receipt Date: 20251115
  Transmission Date: 20260117
  Serious: Yes (Death, Hospitalization)
  Sender: ROCHE
  Company Number: US-ROCHE-10000384460

PATIENT
  Age: 81 Year
  Sex: Female

DRUGS (16)
  1. ESBRIET [Suspect]
     Active Substance: PIRFENIDONE
     Indication: Idiopathic pulmonary fibrosis
     Dosage: MORE DOSAGE INFORMATION IS 267 MG TABLET(S)
     Route: 048
  2. omeprazole 20 mg oral capsule, delayed release (enteric coted) [Concomitant]
     Dosage: TAKEN ONE CAPSULE BY MOUTH ONCE DAILY
     Route: 048
  3. furosemide 40 mg ORAL TABLET [Concomitant]
     Dosage: TAKEN 1 TABLE BY MOUTH EVERY DAY AS NEEDED
     Route: 048
  4. losartan 100 MG ORAL TABLET [Concomitant]
     Route: 048
  5. amlodipine 5mg oral tablet [Concomitant]
     Dosage: TAKEN 1 TAB BY MOUTH AT BED TIME
     Route: 048
  6. MELOXICAM [Concomitant]
     Active Substance: MELOXICAM
     Indication: Pain
     Dosage: TAKEN ONE TABLET BY MOUTH AS NEED FOR PAIN
     Route: 048
  7. albuterol sulfate 2.5mg/3ml(0.083%) inhalation solution nebulization [Concomitant]
     Dosage: 2.5MG/3ML(0.083%)
     Route: 055
  8. albuterol sulfate 2.5mg/3ml(0.083%) inhalation solution nebulization [Concomitant]
     Dosage: 1 TO 2 PUFF AS REQUIRED BY MOUTH?FROM STRENGTH 90MCG ACTUATION /INHALATION
     Route: 055
  9. Allegra allergy 180mg oral tablet [Concomitant]
     Dosage: ONCE AS REQUIRED
     Route: 048
  10. budesonide 0.25mg/ml inhalation suspension for nebulization [Concomitant]
     Dosage: INHALE 0.25 MG BY NEBULIZATION ROUTE 2 TIMES PER DAY
     Route: 055
  11. BUPROPION HCL 150 mg oral tablet Extended release 24 hours [Concomitant]
     Route: 048
  12. Fluticason propinate 50mcg/ acutation intranasal spray suspention [Concomitant]
     Dosage: SHAKE LIQUID AND USE 1 SPRAY IN EACH NOSTRIL TWICE DAILY?50MCG/ACTUATION
     Route: 045
  13. halog 0.1% tropical cream [Concomitant]
     Dosage: APPLY ON AFFECTED AREA (HANDS)
     Route: 061
  14. Hydrocodone-acetaminophane 10-325 mg oral tablet [Concomitant]
     Dosage: 10-325MG
     Route: 048
  15. losartan 100mg oral tablet [Concomitant]
     Dosage: TAKEN ONE TABLET BY MOUTH EVERY MORNING
     Route: 048
  16. xaralto 20 mg oral tablet [Concomitant]
     Route: 048

REACTIONS (1)
  - Pulmonary fibrosis [Fatal]
